FAERS Safety Report 5871838-9 (Version None)
Quarter: 2008Q3

REPORT INFORMATION
  Report Type: 
  Country: None (occurrence: None)
  Receive Date: 20080905
  Receipt Date: 20080826
  Transmission Date: 20090109
  Serious: Yes (Death)
  Sender: FDA-Public Use
  Company Number: US-JNJFOC-20080705316

PATIENT
  Sex: Male
  Weight: 81.65 kg

DRUGS (25)
  1. REMICADE [Suspect]
     Dosage: 4 INFUSIONS PRIOR TO REGISTRATION
     Route: 042
  2. REMICADE [Suspect]
     Dosage: 4 INFUSIONS PRIOR TO REGISTRATION
     Route: 042
  3. REMICADE [Suspect]
     Dosage: 4 INFUSIONS PRIOR TO REGISTRATION
     Route: 042
  4. REMICADE [Suspect]
     Dosage: 4 INFUSIONS PRIOR TO REGISTRATION
     Route: 042
  5. REMICADE [Suspect]
     Dosage: 4 INFUSIONS PRIOR TO REGISTRATION
     Route: 042
  6. REMICADE [Suspect]
     Dosage: 4 INFUSIONS PRIOR TO REGISTRATION
     Route: 042
  7. REMICADE [Suspect]
     Dosage: 4 INFUSIONS PRIOR TO REGISTRATION
     Route: 042
  8. REMICADE [Suspect]
     Dosage: 4 INFUSIONS PRIOR TO REGISTRATION
     Route: 042
  9. REMICADE [Suspect]
     Dosage: 4 INFUSIONS PRIOR TO REGISTRATION
     Route: 042
  10. REMICADE [Suspect]
     Dosage: 4 INFUSIONS PRIOR TO REGISTRATION
     Route: 042
  11. REMICADE [Suspect]
     Dosage: 4 INFUSIONS PRIOR TO REGISTRATION
     Route: 042
  12. REMICADE [Suspect]
     Dosage: 4 INFUSIONS PRIOR TO REGISTRATION
     Route: 042
  13. REMICADE [Suspect]
     Dosage: 4 INFUSIONS PRIOR TO REGISTRATION
     Route: 042
  14. REMICADE [Suspect]
     Dosage: 4 INFUSIONS PRIOR TO REGISTRATION
     Route: 042
  15. REMICADE [Suspect]
     Dosage: 4 INFUSIONS PRIOR TO REGISTRATION
     Route: 042
  16. REMICADE [Suspect]
     Dosage: 4 INFUSIONS PRIOR TO REGISTRATION
     Route: 042
  17. REMICADE [Suspect]
     Dosage: 4 INFUSIONS PRIOR TO REGISTRATION
     Route: 042
  18. REMICADE [Suspect]
     Dosage: 4 INFUSIONS PRIOR TO REGISTRATION
     Route: 042
  19. REMICADE [Suspect]
     Dosage: 4 INFUSIONS PRIOR TO REGISTRATION
     Route: 042
  20. REMICADE [Suspect]
     Dosage: 4 INFUSIONS PRIOR TO REGISTRATION
     Route: 042
  21. REMICADE [Suspect]
     Dosage: 4 INFUSIONS PRIOR TO REGISTRATION
     Route: 042
  22. REMICADE [Suspect]
     Dosage: 4 INFUSIONS PRIOR TO REGISTRATION
     Route: 042
  23. REMICADE [Suspect]
     Dosage: 4 INFUSIONS PRIOR TO REGISTRATION
     Route: 042
  24. REMICADE [Suspect]
     Dosage: 4 INFUSIONS PRIOR TO REGISTRATION
     Route: 042
  25. REMICADE [Suspect]
     Indication: CROHN'S DISEASE
     Dosage: 4 INFUSIONS PRIOR TO BASELINE
     Route: 042

REACTIONS (1)
  - CHOLECYSTITIS [None]
